FAERS Safety Report 8233784-5 (Version None)
Quarter: 2012Q1

REPORT INFORMATION
  Report Type: 
  Country: None (occurrence: None)
  Receive Date: 20120326
  Receipt Date: 20120319
  Transmission Date: 20120608
  Serious: Yes (Other)
  Sender: FDA-Public Use
  Company Number: RU-SANOFI-AVENTIS-2012SA018414

PATIENT
  Age: 59 Year
  Sex: Male

DRUGS (6)
  1. INDAPAMIDE/PERINDOPRIL ERBUMINE [Concomitant]
     Route: 048
  2. BISOPROLOL FUMARATE [Concomitant]
     Route: 048
  3. ACETYLSALICYLIC ACID/MAGNESIUM [Concomitant]
     Indication: THROMBOSIS PROPHYLAXIS
     Route: 048
  4. PLAVIX [Suspect]
     Indication: THROMBOSIS PROPHYLAXIS
     Route: 048
     Dates: start: 20101101
  5. PLAVIX [Suspect]
     Route: 048
     Dates: start: 20101101
  6. DIABETON [Concomitant]
     Indication: TYPE 2 DIABETES MELLITUS
     Route: 048

REACTIONS (3)
  - INCORRECT DRUG ADMINISTRATION DURATION [None]
  - GASTRITIS EROSIVE [None]
  - ABDOMINAL PAIN UPPER [None]
